FAERS Safety Report 7792259-8 (Version None)
Quarter: 2011Q3

REPORT INFORMATION
  Report Type: 
  Country: None (occurrence: None)
  Receive Date: 20110929
  Receipt Date: 20110916
  Transmission Date: 20111222
  Serious: Yes (Hospitalization)
  Sender: FDA-Public Use
  Company Number: 11US003211

PATIENT
  Sex: Male

DRUGS (2)
  1. STAVZOR [Suspect]
     Indication: PRODUCT USED FOR UNKNOWN INDICATION
     Dosage: ORAL
     Route: 048
  2. DEPAKOTE [Concomitant]

REACTIONS (1)
  - DIARRHOEA [None]
